FAERS Safety Report 5384320-2 (Version None)
Quarter: 2007Q3

REPORT INFORMATION
  Report Type: 
  Country: None (occurrence: None)
  Receive Date: 20070703
  Receipt Date: 20070306
  Transmission Date: 20080115
  Serious: Yes (Hospitalization)
  Sender: FDA-Public Use
  Company Number: 2007-BP-03105BP

PATIENT
  Age: 75 Year
  Sex: Male
  Weight: 77 kg

DRUGS (13)
  1. MIRAPEX [Suspect]
     Indication: PARKINSON'S DISEASE
     Dosage: 3 MG (0.5 MG,0.5 MG 6X/DAY),PO
     Route: 048
     Dates: end: 20060101
  2. APOKYN [Suspect]
     Indication: PARKINSON'S DISEASE
     Dosage: SEE TEXT (0.4 ML, 0.4 TO 0.8ML)SC
     Route: 058
     Dates: start: 20050312
  3. SINEMET CR (SINEMET) [Concomitant]
  4. SINEMET [Concomitant]
  5. TASMAR [Concomitant]
  6. RIFAMPICIN [Concomitant]
  7. LEVAQUIN [Concomitant]
  8. KLONOPIN [Concomitant]
  9. TRAZODONE HCL [Concomitant]
  10. AVODART [Concomitant]
  11. CYMBALTA [Concomitant]
  12. KETOCONAZOLE [Concomitant]
  13. NEXIUM [Concomitant]

REACTIONS (5)
  - FALL [None]
  - HALLUCINATION, AUDITORY [None]
  - HALLUCINATION, VISUAL [None]
  - LOSS OF CONSCIOUSNESS [None]
  - SOMNAMBULISM [None]
